FAERS Safety Report 19701751 (Version 2)
Quarter: 2021Q4

REPORT INFORMATION
  Report Type: Other
  Country: US (occurrence: US)
  Receive Date: 20210813
  Receipt Date: 20211020
  Transmission Date: 20220303
  Serious: Yes (Hospitalization, Other)
  Sender: FDA-Public Use
  Company Number: US-COVIS PHARMA GMBH-2021COV23285

PATIENT
  Age: 33 Year
  Sex: Female

DRUGS (2)
  1. MAKENA [Suspect]
     Active Substance: HYDROXYPROGESTERONE CAPROATE
     Indication: Premature delivery
     Route: 058
     Dates: start: 20210223, end: 20210609
  2. VITAMINS [Concomitant]
     Active Substance: VITAMINS
     Indication: Pregnancy
     Dates: start: 20210223, end: 20210909

REACTIONS (4)
  - Preterm premature rupture of membranes [Recovered/Resolved]
  - Premature delivery [Recovered/Resolved]
  - Blood iron decreased [Unknown]
  - Dyspepsia [Unknown]

NARRATIVE: CASE EVENT DATE: 20210616
